FAERS Safety Report 12269287 (Version 1)
Quarter: 2016Q2

REPORT INFORMATION
  Report Type: Spontaneous
  Country: US (occurrence: US)
  Receive Date: 20160414
  Receipt Date: 20160414
  Transmission Date: 20160815
  Serious: Yes (Other)
  Sender: FDA-Public Use
  Company Number: US-TEVA-650780USA

PATIENT
  Age: 65 Year
  Sex: Male
  Weight: 69.46 kg

DRUGS (1)
  1. TRAZODONE [Suspect]
     Active Substance: TRAZODONE HYDROCHLORIDE
     Indication: SLEEP DISORDER
     Route: 065
     Dates: start: 2000, end: 201602

REACTIONS (9)
  - Hepatic enzyme abnormal [Unknown]
  - Therapy cessation [Unknown]
  - Insomnia [Unknown]
  - Pancreatitis chronic [Unknown]
  - Wrong technique in product usage process [Unknown]
  - Depression [Unknown]
  - Sinus headache [Unknown]
  - Sinus disorder [Unknown]
  - Bipolar I disorder [Unknown]

NARRATIVE: CASE EVENT DATE: 201402
